FAERS Safety Report 8989505 (Version 2)
Quarter: 2013Q2

REPORT INFORMATION
  Report Type: Spontaneous
  Country: US (occurrence: US)
  Receive Date: 20121228
  Receipt Date: 20130412
  Transmission Date: 20140414
  Serious: No
  Sender: FDA-Public Use
  Company Number: US-BIOGENIDEC-2012BI062958

PATIENT
  Age: 54 Year
  Sex: Female

DRUGS (2)
  1. TYSABRI [Suspect]
     Indication: MULTIPLE SCLEROSIS
     Route: 042
     Dates: start: 20120419, end: 20121101
  2. TYSABRI [Suspect]
     Indication: MULTIPLE SCLEROSIS
     Route: 042

REACTIONS (2)
  - Heart rate decreased [Recovered/Resolved]
  - Alopecia [Recovered/Resolved]
